FAERS Safety Report 23648891 (Version 1)
Quarter: 2024Q1

REPORT INFORMATION
  Report Type: Spontaneous
  Country: US (occurrence: None)
  Receive Date: 20240318
  Receipt Date: 20240318
  Transmission Date: 20240409
  Serious: Yes (Other)
  Sender: FDA-Public Use
  Company Number: None

PATIENT
  Age: 52 Year
  Sex: Female
  Weight: 90 kg

DRUGS (2)
  1. VANCOMYCIN [Suspect]
     Active Substance: VANCOMYCIN
     Indication: Arteriovenous fistula
     Dosage: FREQUENCY : ONCE;?
     Route: 042
     Dates: start: 20240305, end: 20240305
  2. VANCOMYCIN [Suspect]
     Active Substance: VANCOMYCIN
     Indication: Erythema

REACTIONS (4)
  - Dialysis [None]
  - Heart rate increased [None]
  - Blood pressure decreased [None]
  - Volume blood decreased [None]

NARRATIVE: CASE EVENT DATE: 20240305
